FAERS Safety Report 9775712 (Version 3)
Quarter: 2014Q1

REPORT INFORMATION
  Report Type: Report from Study
  Country: US (occurrence: US)
  Receive Date: 20131220
  Receipt Date: 20140120
  Transmission Date: 20141002
  Serious: Yes (Death, Hospitalization)
  Sender: FDA-Public Use
  Company Number: US-ACTELION-A-US2013-91283

PATIENT
  Age: 61 Year
  Sex: Female

DRUGS (5)
  1. VELETRI [Suspect]
     Indication: PULMONARY ARTERIAL HYPERTENSION
     Dosage: 44.87 NG/KG, PER MIN
     Route: 042
     Dates: start: 20120328, end: 20131214
  2. TRACLEER [Suspect]
     Indication: PULMONARY ARTERIAL HYPERTENSION
     Dosage: 62.5 MG, BID
     Route: 048
     Dates: start: 20100405
  3. XARELTO [Concomitant]
  4. DIGOXIN [Concomitant]
  5. SILDENAFIL [Concomitant]

REACTIONS (15)
  - Death [Fatal]
  - Dehydration [Unknown]
  - Nasal septum perforation [Unknown]
  - Epistaxis [Unknown]
  - Sinusitis [Unknown]
  - Dizziness [Unknown]
  - Oedema [Unknown]
  - Ascites [Unknown]
  - Nausea [Unknown]
  - Palpitations [Unknown]
  - Headache [Unknown]
  - Pain in jaw [Unknown]
  - Diarrhoea [Unknown]
  - Weight decreased [Unknown]
  - Fluid retention [Unknown]
